FAERS Safety Report 20752161 (Version 7)
Quarter: 2022Q4

REPORT INFORMATION
  Report Type: Report from Study
  Country: US (occurrence: US)
  Receive Date: 20220426
  Receipt Date: 20221117
  Transmission Date: 20230113
  Serious: Yes (Other)
  Sender: FDA-Public Use
  Company Number: US-NOVARTISTESTPH-NVSC2022US095451

PATIENT
  Sex: Female

DRUGS (1)
  1. KESIMPTA [Suspect]
     Active Substance: OFATUMUMAB
     Indication: Product used for unknown indication
     Dosage: UNK
     Route: 065
     Dates: end: 202209

REACTIONS (6)
  - Syncope [Unknown]
  - Stress [Unknown]
  - Hot flush [Unknown]
  - Skin laceration [Unknown]
  - Contusion [Unknown]
  - Product dose omission issue [Unknown]
